FAERS Safety Report 6778940-8 (Version None)
Quarter: 2010Q2

REPORT INFORMATION
  Report Type: 
  Country: None (occurrence: None)
  Receive Date: 20100618
  Receipt Date: 20100607
  Transmission Date: 20101027
  Serious: Yes (Other)
  Sender: FDA-Public Use
  Company Number: FR-CELGENEUS-056-20785-10060738

PATIENT

DRUGS (2)
  1. THALIDOMIDE [Suspect]
     Indication: MULTIPLE MYELOMA
     Dosage: 50-400 MG/DAY
     Route: 048
  2. PAMIDRONATE DISODIUM [Suspect]
     Indication: MULTIPLE MYELOMA
     Route: 051

REACTIONS (14)
  - ANAEMIA [None]
  - BONE DISORDER [None]
  - CARDIAC DISORDER [None]
  - CONSTIPATION [None]
  - FATIGUE [None]
  - INFECTION [None]
  - MOOD ALTERED [None]
  - NAUSEA [None]
  - NEUROPATHY PERIPHERAL [None]
  - NEUTROPENIA [None]
  - OSTEONECROSIS OF JAW [None]
  - RENAL DISORDER [None]
  - THROMBOCYTOPENIA [None]
  - THROMBOSIS [None]
